FAERS Safety Report 9750636 (Version 1)
Quarter: 2013Q4

REPORT INFORMATION
  Report Type: Spontaneous
  Country: US (occurrence: US)
  Receive Date: 20131212
  Receipt Date: 20131212
  Transmission Date: 20140711
  Serious: No
  Sender: FDA-Public Use
  Company Number: US-BIOGENIDEC-2013BI095371

PATIENT
  Sex: Female

DRUGS (14)
  1. TECFIDERA [Suspect]
     Indication: MULTIPLE SCLEROSIS
     Route: 048
  2. PROMETHAZINE [Concomitant]
  3. TRAMADOL [Concomitant]
  4. NASONEX [Concomitant]
  5. ADVAIR [Concomitant]
  6. BUSPIRONE [Concomitant]
  7. LUSTRA [Concomitant]
  8. TIZANIDINE [Concomitant]
  9. CYANOCOBALAMIN [Concomitant]
  10. OMEPRAZOLE [Concomitant]
  11. FOLIC ACID [Concomitant]
  12. PREDNISONE OPTH [Concomitant]
  13. VITAMIN D [Concomitant]
  14. EC ASPIRIN [Concomitant]

REACTIONS (1)
  - Abdominal discomfort [Unknown]
